FAERS Safety Report 21851605 (Version 2)
Quarter: 2023Q1

REPORT INFORMATION
  Report Type: Spontaneous
  Country: TR (occurrence: TR)
  Receive Date: 20230112
  Receipt Date: 20230201
  Transmission Date: 20230418
  Serious: Yes (Hospitalization)
  Sender: FDA-Public Use
  Company Number: TR-TEVA-2023-TR-2844202

PATIENT
  Age: 36 Year
  Sex: Female

DRUGS (15)
  1. ARIPIPRAZOLE [Suspect]
     Active Substance: ARIPIPRAZOLE
     Indication: Bipolar I disorder
     Dosage: ARIPIPRAZOLE LONG-ACTING IM INJECTION WAS ADMINISTERED
     Route: 030
  2. ARIPIPRAZOLE [Suspect]
     Active Substance: ARIPIPRAZOLE
     Dosage: 10 MILLIGRAM DAILY; ONCE A DAY
     Route: 048
  3. VALPROATE [Suspect]
     Active Substance: VALPROIC ACID
     Indication: Bipolar I disorder
     Dosage: 1500 MILLIGRAM DAILY; ONCE A DAY
     Route: 065
  4. VALPROATE [Suspect]
     Active Substance: VALPROIC ACID
     Dosage: 1000 MILLIGRAM DAILY; ON THE 13TH DAY OF HER HOSPITALIZATION , ONCE A DAY
     Route: 065
  5. VALPROATE [Suspect]
     Active Substance: VALPROIC ACID
     Dosage: 1500 MILLIGRAM DAILY; INCREASED TO 1500 MG/DAY ON THE 19TH DAY , ONCE A DAY
     Route: 065
  6. ZUCLOPENTHIXOL [Suspect]
     Active Substance: ZUCLOPENTHIXOL
     Indication: Bipolar I disorder
     Dosage: DEPOT 200 MG/2 WEEKS
     Route: 065
  7. ZUCLOPENTHIXOL ACETATE [Suspect]
     Active Substance: ZUCLOPENTHIXOL ACETATE
     Indication: Bipolar I disorder
     Dosage: 50 MG
     Route: 030
  8. HALOPERIDOL [Suspect]
     Active Substance: HALOPERIDOL
     Indication: Bipolar I disorder
     Dosage: 10 MILLIGRAM DAILY; ONCE A DAY
     Route: 065
  9. LORAZEPAM [Suspect]
     Active Substance: LORAZEPAM
     Indication: Bipolar I disorder
     Dosage: 4 MILLIGRAM DAILY; ONCE A DAY
     Route: 065
  10. QUETIAPINE [Suspect]
     Active Substance: QUETIAPINE
     Indication: Bipolar I disorder
     Dosage: 400 MILLIGRAM DAILY; ADDED TO THE TREATMENT ON THE 17TH DAY , ONCE A DAY
     Route: 065
  11. CLOZAPINE [Suspect]
     Active Substance: CLOZAPINE
     Indication: Bipolar I disorder
     Dosage: 25 MILLIGRAM DAILY; ONCE A DAY
     Route: 065
  12. CLOZAPINE [Suspect]
     Active Substance: CLOZAPINE
     Dosage: 150 MILLIGRAM DAILY; WAS GRADUALLY INCREASED TO 150 MG/DAY ON THE 40TH DAY , ONCE A DAY
     Route: 065
  13. LITHIUM [Concomitant]
     Active Substance: LITHIUM
     Indication: Bipolar I disorder
     Dosage: 900 MILLIGRAM DAILY; ONCE A DAY
     Route: 065
  14. RISPERIDONE [Concomitant]
     Active Substance: RISPERIDONE
     Indication: Bipolar I disorder
     Dosage: 2 MILLIGRAM DAILY; ONCE A DAY
     Route: 065
  15. BIPERIDEN [Concomitant]
     Active Substance: BIPERIDEN
     Indication: Bipolar I disorder
     Dosage: 4 MILLIGRAM DAILY; ONCE A DAY
     Route: 065

REACTIONS (3)
  - Salivary hypersecretion [Recovering/Resolving]
  - Constipation [Recovering/Resolving]
  - Drug ineffective [Unknown]
